FAERS Safety Report 8477069-0 (Version None)
Quarter: 2012Q2

REPORT INFORMATION
  Report Type: 
  Country: None (occurrence: None)
  Receive Date: 20120629
  Receipt Date: 20120627
  Transmission Date: 20120825
  Serious: No
  Sender: FDA-Public Use
  Company Number: US-PFIZER INC-2012155017

PATIENT
  Sex: Male
  Weight: 93.878 kg

DRUGS (1)
  1. SUTENT [Suspect]
     Indication: GASTROINTESTINAL STROMAL TUMOUR
     Dosage: 37.5 (TAKING THREE 12.5MG) MG, 1X/DAY
     Route: 048

REACTIONS (3)
  - DIARRHOEA [None]
  - DRY SKIN [None]
  - HYPERKERATOSIS [None]
